FAERS Safety Report 4614537-3 (Version None)
Quarter: 2005Q2

REPORT INFORMATION
  Report Type: 
  Country: None (occurrence: None)
  Receive Date: 20050307
  Receipt Date: 20041202
  Transmission Date: 20051028
  Serious: No
  Sender: FDA-Public Use
  Company Number: USA041184068

PATIENT
  Sex: Female

DRUGS (7)
  1. ALIMITA (PEMETREXED) [Suspect]
     Indication: NON-SMALL CELL LUNG CANCER METASTATIC
     Dosage: 834 MG
     Dates: start: 20041103
  2. DEXAMETHASONE [Concomitant]
  3. FOLIC ACID [Concomitant]
  4. VITAMIN B-12 [Concomitant]
  5. TRANXENE [Concomitant]
  6. TYLENOL (CAPLET) [Concomitant]
  7. DIFLUCAN [Concomitant]

REACTIONS (2)
  - DYSPHAGIA [None]
  - RASH [None]
